FAERS Safety Report 15907733 (Version 1)
Quarter: 2019Q1

REPORT INFORMATION
  Report Type: Spontaneous
  Country: CN (occurrence: CN)
  Receive Date: 20190204
  Receipt Date: 20190204
  Transmission Date: 20190417
  Serious: Yes (Hospitalization)
  Sender: FDA-Public Use
  Company Number: CN-BAYER-2019-020664

PATIENT
  Age: 77 Year
  Sex: Male
  Weight: 68 kg

DRUGS (2)
  1. BAYASPIRIN 100 MG [Suspect]
     Active Substance: ASPIRIN
     Indication: THROMBOSIS
     Dosage: 100 MG, QD
     Route: 048
     Dates: start: 20180520, end: 20181113
  2. PRADAXA [Suspect]
     Active Substance: DABIGATRAN ETEXILATE MESYLATE
     Indication: COAGULOPATHY
     Dosage: 110 MG, BID
     Route: 048
     Dates: start: 20180520, end: 20181113

REACTIONS (3)
  - Asthenia [Recovering/Resolving]
  - Haematochezia [Recovering/Resolving]
  - Diarrhoea [Recovering/Resolving]

NARRATIVE: CASE EVENT DATE: 20181106
